FAERS Safety Report 10033099 (Version 1)
Quarter: 2014Q1

REPORT INFORMATION
  Report Type: Spontaneous
  Country: IT (occurrence: IT)
  Receive Date: 20140324
  Receipt Date: 20140324
  Transmission Date: 20141002
  Serious: Yes (Other)
  Sender: FDA-Public Use
  Company Number: IT-LUNDBECK-DKLU1098510

PATIENT
  Age: 11 Year
  Sex: Male

DRUGS (3)
  1. FRISIUM [Suspect]
     Indication: PARTIAL SEIZURES
     Route: 048
  2. TEGRETOL [Suspect]
     Indication: PARTIAL SEIZURES
     Route: 048
  3. TEGRETOL [Suspect]
     Route: 048

REACTIONS (1)
  - Epileptic aura [Recovered/Resolved]
